FAERS Safety Report 10089003 (Version 1)
Quarter: 2014Q2

REPORT INFORMATION
  Report Type: Spontaneous
  Country: US (occurrence: None)
  Receive Date: 20140418
  Receipt Date: 20140418
  Transmission Date: 20141212
  Serious: Yes (Other)
  Sender: FDA-Public Use
  Company Number: None

PATIENT
  Age: 73 Year
  Sex: Female
  Weight: 98.88 kg

DRUGS (9)
  1. LATANOPROST [Suspect]
     Indication: GLAUCOMA
     Dosage: 1 DROP EACH EYE  BEDTIME  DROP IN EYE
     Route: 047
     Dates: start: 20140218, end: 20140225
  2. LATANOPROST [Suspect]
     Dosage: 1 DROP EACH EYE  BEDTIME  DROP IN EYE
     Route: 047
     Dates: start: 20140218, end: 20140225
  3. AIMODARONE [Concomitant]
  4. TRAVATAN Z [Concomitant]
  5. PRAVASTAIN [Concomitant]
  6. LEVOTHYROXINE [Concomitant]
  7. MULTI-VITAMIN [Concomitant]
  8. CALCIUM W/D [Concomitant]
  9. FISH OIL [Concomitant]

REACTIONS (2)
  - Product substitution issue [None]
  - Eye disorder [None]
